FAERS Safety Report 21087977 (Version 3)
Quarter: 2022Q3

REPORT INFORMATION
  Report Type: Report from Study
  Country: US (occurrence: US)
  Receive Date: 20220715
  Receipt Date: 20220808
  Transmission Date: 20221027
  Serious: No
  Sender: FDA-Public Use
  Company Number: US-BIOVITRUM-2022US08604

PATIENT
  Sex: Female

DRUGS (10)
  1. KINERET [Suspect]
     Active Substance: ANAKINRA
     Indication: Rheumatoid arthritis
     Dates: start: 20220706
  2. KINERET [Suspect]
     Active Substance: ANAKINRA
     Dates: start: 20220707
  3. AMITRIPTYLINE [Concomitant]
     Active Substance: AMITRIPTYLINE
  4. ASPIRIN [Concomitant]
     Active Substance: ASPIRIN
  5. HYDROXYCHLOROQUINE [Concomitant]
     Active Substance: HYDROXYCHLOROQUINE
  6. VITAMIN D3 [Concomitant]
     Active Substance: CHOLECALCIFEROL
  7. LOSARTAN [Concomitant]
     Active Substance: LOSARTAN
  8. DULOXETINE [Concomitant]
     Active Substance: DULOXETINE
  9. HYDROCHLOROTHIAZIDE [Concomitant]
     Active Substance: HYDROCHLOROTHIAZIDE
  10. PROBIOTICS NOS [Concomitant]
     Active Substance: PROBIOTICS NOS

REACTIONS (8)
  - Illness [Unknown]
  - SARS-CoV-2 test positive [Unknown]
  - Pain [Unknown]
  - Swelling [Unknown]
  - Erythema [Unknown]
  - Injection site pruritus [Unknown]
  - Rash [Unknown]
  - Urticaria [Unknown]
